FAERS Safety Report 10341277 (Version 2)
Quarter: 2014Q3

REPORT INFORMATION
  Report Type: Report from Study
  Country: US (occurrence: US)
  Receive Date: 20140725
  Receipt Date: 20140725
  Transmission Date: 20150326
  Serious: Yes (Hospitalization)
  Sender: FDA-Public Use
  Company Number: US-ROCHE-1378765

PATIENT
  Age: 82 Year
  Sex: Male
  Weight: 94.43 kg

DRUGS (1)
  1. AVASTIN [Suspect]
     Active Substance: BEVACIZUMAB
     Indication: COLORECTAL CANCER METASTATIC
     Route: 042
     Dates: start: 201403, end: 201405

REACTIONS (7)
  - Hiatus hernia [Recovering/Resolving]
  - Weight decreased [Unknown]
  - Nausea [Recovering/Resolving]
  - Infection [Unknown]
  - Metastases to liver [Recovering/Resolving]
  - Insomnia [Recovered/Resolved]
  - Constipation [Not Recovered/Not Resolved]

NARRATIVE: CASE EVENT DATE: 201406
